FAERS Safety Report 6703952-X (Version None)
Quarter: 2010Q2

REPORT INFORMATION
  Report Type: 
  Country: None (occurrence: None)
  Receive Date: 20100430
  Receipt Date: 20100420
  Transmission Date: 20101027
  Serious: Yes (Other)
  Sender: FDA-Public Use
  Company Number: US-PFIZER INC-2010050045

PATIENT
  Sex: Female
  Weight: 81.633 kg

DRUGS (3)
  1. LYRICA [Suspect]
     Indication: FIBROMYALGIA
     Dosage: 50 MG, UNK
     Route: 048
     Dates: start: 20090101, end: 20090101
  2. OXYCONTIN [Concomitant]
     Indication: PAIN
     Dosage: 40 MG, 3X/DAY
     Route: 048
  3. NORCO [Concomitant]
     Indication: PAIN
     Dosage: 10 MG, AS NEEDED
     Route: 048

REACTIONS (3)
  - JOINT SWELLING [None]
  - PAIN [None]
  - WEIGHT INCREASED [None]
